FAERS Safety Report 13442505 (Version 1)
Quarter: 2017Q2

REPORT INFORMATION
  Report Type: Spontaneous
  Country: US (occurrence: US)
  Receive Date: 20170413
  Receipt Date: 20170413
  Transmission Date: 20170830
  Serious: Yes (Disabling)
  Sender: FDA-Public Use
  Company Number: None

PATIENT
  Age: 35 Year
  Sex: Female
  Weight: 96.75 kg

DRUGS (3)
  1. SUMATRIPTAN INJECTION USP [Suspect]
     Active Substance: SUMATRIPTAN
     Indication: MIGRAINE
     Dosage: ?          QUANTITY:1 INJECTION(S);?
     Route: 058
     Dates: start: 20170412, end: 20170412
  2. MELATONIN [Concomitant]
     Active Substance: MELATONIN
  3. LEXAPRO [Concomitant]
     Active Substance: ESCITALOPRAM OXALATE

REACTIONS (11)
  - Musculoskeletal stiffness [None]
  - Dyspnoea [None]
  - Tachycardia [None]
  - Dizziness [None]
  - Chest pain [None]
  - Feeling hot [None]
  - Peripheral coldness [None]
  - Neck pain [None]
  - Sensation of foreign body [None]
  - Anaphylactic reaction [None]
  - Hyperhidrosis [None]

NARRATIVE: CASE EVENT DATE: 20170412
